FAERS Safety Report 8450237-X (Version None)
Quarter: 2012Q2

REPORT INFORMATION
  Report Type: 
  Country: None (occurrence: None)
  Receive Date: 20120620
  Receipt Date: 20120607
  Transmission Date: 20120825
  Serious: Yes (Life-Threatening, Other)
  Sender: FDA-Public Use
  Company Number: JP-VERTEX PHARMACEUTICALS INC.-AE-2012-008711

PATIENT
  Age: 53 Year
  Sex: Male

DRUGS (12)
  1. MOTILIUM [Concomitant]
     Route: 048
     Dates: start: 20120302
  2. TELAVIC (TELAPREVIR) [Suspect]
     Route: 048
     Dates: start: 20120410
  3. TSUMURA SHAKUYAKUKANZOTO EXTRACT GRANULES FOR ETHICAL USE [Concomitant]
     Route: 048
     Dates: start: 20120403
  4. PEG-INTRON [Concomitant]
     Indication: HEPATITIS C
     Route: 058
     Dates: start: 20120228
  5. TELAVIC (TELAPREVIR) [Suspect]
     Indication: HEPATITIS C
     Route: 048
     Dates: start: 20120228
  6. TELAVIC (TELAPREVIR) [Suspect]
     Route: 048
     Dates: start: 20120417, end: 20120508
  7. ALLOPURINOL [Concomitant]
     Route: 048
     Dates: start: 20120417
  8. URSO 250 [Concomitant]
     Route: 048
  9. TELAVIC (TELAPREVIR) [Suspect]
     Route: 048
     Dates: start: 20120403, end: 20120409
  10. PEG-INTRON [Concomitant]
     Route: 058
     Dates: start: 20120320, end: 20120326
  11. PEG-INTRON [Concomitant]
     Route: 058
     Dates: start: 20120327, end: 20120508
  12. REBETOL [Concomitant]
     Indication: HEPATITIS C
     Route: 048
     Dates: start: 20120228, end: 20120508

REACTIONS (2)
  - PANCYTOPENIA [None]
  - ANAEMIA [None]
